FAERS Safety Report 4491497-X (Version None)
Quarter: 2004Q4

REPORT INFORMATION
  Report Type: 
  Country: None (occurrence: None)
  Receive Date: 20041101
  Receipt Date: 20041015
  Transmission Date: 20050328
  Serious: Yes (Hospitalization, Disabling)
  Sender: FDA-Public Use
  Company Number: B0264828A

PATIENT
  Age: 59 Year
  Sex: Female

DRUGS (6)
  1. PAXIL [Suspect]
     Indication: DEPRESSIVE SYMPTOM
     Dosage: ORAL
     Route: 048
     Dates: start: 20001030
  2. AMOX.TRIHYD+POT.CLAVULAN. [Concomitant]
  3. COUGH MEDICATION [Concomitant]
  4. ATENOLOL AND CHLORTHALIDONE [Concomitant]
  5. LOSARTAN POTASSIUM [Concomitant]
  6. DOXAZOSIN [Concomitant]

REACTIONS (26)
  - AMNESIA [None]
  - BEDRIDDEN [None]
  - BLOOD POTASSIUM DECREASED [None]
  - BLOOD PRESSURE SYSTOLIC INCREASED [None]
  - BRAIN OEDEMA [None]
  - CENTRAL PONTINE MYELINOLYSIS [None]
  - COMA [None]
  - CONTUSION [None]
  - DYSPHAGIA [None]
  - DYSPNOEA [None]
  - DYSSTASIA [None]
  - ELECTROCARDIOGRAM QT PROLONGED [None]
  - FALL [None]
  - HOARSENESS [None]
  - INAPPROPRIATE ANTIDIURETIC HORMONE SECRETION [None]
  - JOINT RANGE OF MOTION DECREASED [None]
  - METABOLIC DISORDER [None]
  - MUSCLE TWITCHING [None]
  - NASOPHARYNGITIS [None]
  - OEDEMA PERIPHERAL [None]
  - PANNICULITIS [None]
  - POLLAKIURIA [None]
  - POLYDIPSIA [None]
  - RHONCHI [None]
  - URINARY INCONTINENCE [None]
  - WHEEZING [None]
